FAERS Safety Report 16059949 (Version 1)
Quarter: 2019Q1

REPORT INFORMATION
  Report Type: Report from Study
  Country: None (occurrence: US)
  Receive Date: 20190312
  Receipt Date: 20190312
  Transmission Date: 20190418
  Serious: Yes (Other)
  Sender: FDA-Public Use
  Company Number: US-ABBVIE-19K-163-2634952-00

PATIENT
  Age: 81 Year
  Sex: Male

DRUGS (2)
  1. HUMIRA [Suspect]
     Active Substance: ADALIMUMAB
     Indication: PSORIASIS
     Route: 058
     Dates: start: 20180419, end: 20190107
  2. HUMIRA [Suspect]
     Active Substance: ADALIMUMAB
     Route: 058
     Dates: start: 2019

REACTIONS (6)
  - Psoriasis [Recovered/Resolved]
  - Gastroenteritis viral [Unknown]
  - Psoriasis [Not Recovered/Not Resolved]
  - Folliculitis [Unknown]
  - Coronary artery occlusion [Unknown]
  - Chest discomfort [Unknown]

NARRATIVE: CASE EVENT DATE: 201810
